FAERS Safety Report 6725141-5 (Version None)
Quarter: 2010Q2

REPORT INFORMATION
  Report Type: 
  Country: None (occurrence: None)
  Receive Date: 20100513
  Receipt Date: 20100513
  Transmission Date: 20101027
  Serious: Yes (Hospitalization)
  Sender: FDA-Public Use
  Company Number: None

PATIENT
  Age: 62 Year
  Sex: Male
  Weight: 64.4 kg

DRUGS (11)
  1. BEVACIZUMAB [Suspect]
     Indication: OESOPHAGEAL CANCER METASTATIC
     Dosage: 10MG/KGD1
     Route: 042
     Dates: start: 20100423, end: 20100430
  2. DOCETAXEL [Suspect]
     Indication: OESOPHAGEAL CANCER METASTATIC
     Dosage: 30MG/M2D1D8IV
     Route: 042
     Dates: start: 20100423, end: 20100430
  3. CISPLATIN [Suspect]
     Indication: OESOPHAGEAL CANCER METASTATIC
     Dosage: 25MG/M2D1D8
     Dates: start: 20100423, end: 20100430
  4. IRINOTECAN [Concomitant]
     Indication: OESOPHAGEAL CANCER METASTATIC
     Dosage: 50M/M2D1D8
     Dates: start: 20100423, end: 20100430
  5. BACLOFEN [Concomitant]
  6. CIPROFLOXACIN [Concomitant]
  7. COMPAZINE [Concomitant]
  8. DECADRON [Concomitant]
  9. LOMITIL [Concomitant]
  10. OPIUM TINCTURE DEODORIZED [Concomitant]
  11. ZOFRAN [Concomitant]

REACTIONS (2)
  - ABDOMINAL PAIN [None]
  - DIARRHOEA [None]
